FAERS Safety Report 4470606-2 (Version None)
Quarter: 2004Q4

REPORT INFORMATION
  Report Type: 
  Country: None (occurrence: None)
  Receive Date: 20041005
  Receipt Date: 20040922
  Transmission Date: 20050328
  Serious: Yes (Hospitalization, Other)
  Sender: FDA-Public Use
  Company Number: 2004069188

PATIENT
  Age: 81 Year
  Sex: Male

DRUGS (3)
  1. ZOLOFT [Suspect]
     Indication: ILL-DEFINED DISORDER
     Dosage: 50 MG (50 MG, 1 IN 1 D), ORAL
     Route: 048
     Dates: start: 20040101, end: 20040801
  2. DONEPEZIL (DONEPEZIL) [Suspect]
     Indication: ILL-DEFINED DISORDER
     Dosage: 10 MG (1 IN 1 D), ORAL
     Route: 048
  3. BROMAZEPAM (BROMAZEPAM) [Concomitant]

REACTIONS (11)
  - AGGRESSION [None]
  - AGITATION [None]
  - BODY TEMPERATURE INCREASED [None]
  - CEREBRAL ATROPHY [None]
  - CONFUSIONAL STATE [None]
  - EYE DISORDER [None]
  - GRAND MAL CONVULSION [None]
  - LOGORRHOEA [None]
  - LOSS OF CONSCIOUSNESS [None]
  - RESTLESSNESS [None]
  - VOMITING [None]
